FAERS Safety Report 5824324-6 (Version None)
Quarter: 2008Q3

REPORT INFORMATION
  Report Type: 
  Country: None (occurrence: None)
  Receive Date: 20080728
  Receipt Date: 20080718
  Transmission Date: 20090109
  Serious: Yes (Other)
  Sender: FDA-Public Use
  Company Number: JP-JNJFOC-20080705600

PATIENT

DRUGS (3)
  1. ITRIZOLE [Suspect]
     Indication: ONYCHOMYCOSIS
     Route: 048
  2. AMLODIPINE BESYLATE [Concomitant]
  3. DISOPYRAMIDE [Concomitant]

REACTIONS (1)
  - BRADYCARDIA [None]
